FAERS Safety Report 22945929 (Version 2)
Quarter: 2023Q4

REPORT INFORMATION
  Report Type: Spontaneous
  Country: US (occurrence: US)
  Receive Date: 20230915
  Receipt Date: 20231002
  Transmission Date: 20240110
  Serious: Yes (Hospitalization, Other)
  Sender: FDA-Public Use
  Company Number: US-Accord-378512

PATIENT
  Age: 72 Year
  Sex: Male

DRUGS (7)
  1. FLUOROURACIL [Suspect]
     Active Substance: FLUOROURACIL
     Indication: Adenocarcinoma pancreas
  2. IRINOTECAN [Suspect]
     Active Substance: IRINOTECAN
     Indication: Adenocarcinoma pancreas
  3. LEUCOVORIN [Suspect]
     Active Substance: LEUCOVORIN\LEUCOVORIN CALCIUM
     Indication: Adenocarcinoma pancreas
  4. APIXABAN [Concomitant]
     Active Substance: APIXABAN
     Indication: Portal vein thrombosis
  5. DIPHENHYDRAMINE [Concomitant]
     Active Substance: DIPHENHYDRAMINE
     Indication: Agitation
  6. HALOPERIDOL [Concomitant]
     Active Substance: HALOPERIDOL
     Indication: Agitation
  7. OLANZAPINE [Concomitant]
     Active Substance: OLANZAPINE
     Indication: Agitation

REACTIONS (2)
  - Psychotic disorder [Recovered/Resolved]
  - Off label use [Unknown]
